FAERS Safety Report 11794019 (Version 6)
Quarter: 2019Q4

REPORT INFORMATION
  Report Type: Spontaneous
  Country: CA (occurrence: CA)
  Receive Date: 20151202
  Receipt Date: 20191218
  Transmission Date: 20200122
  Serious: Yes (Other)
  Sender: FDA-Public Use
  Company Number: CA-ROCHE-1671646

PATIENT
  Sex: Female

DRUGS (2)
  1. XOLAIR [Suspect]
     Active Substance: OMALIZUMAB
     Indication: ASTHMA
     Route: 058
     Dates: start: 20060301
  2. XOLAIR [Suspect]
     Active Substance: OMALIZUMAB
     Route: 058
     Dates: start: 20090622

REACTIONS (11)
  - Influenza [Unknown]
  - Forced expiratory volume decreased [Recovering/Resolving]
  - Asthma [Not Recovered/Not Resolved]
  - Nasopharyngitis [Unknown]
  - Forced vital capacity decreased [Unknown]
  - Diarrhoea [Recovering/Resolving]
  - Viral infection [Unknown]
  - Pneumonia [Unknown]
  - Dyspnoea [Unknown]
  - Nausea [Recovering/Resolving]
  - Middle insomnia [Unknown]

NARRATIVE: CASE EVENT DATE: 2016
